FAERS Safety Report 9144870 (Version 2)
Quarter: 2013Q2

REPORT INFORMATION
  Report Type: Spontaneous
  Country: US (occurrence: US)
  Receive Date: 20130307
  Receipt Date: 20130423
  Transmission Date: 20140414
  Serious: No
  Sender: FDA-Public Use
  Company Number: US-009507513-1303USA001356

PATIENT
  Sex: 0

DRUGS (1)
  1. ISENTRESS [Suspect]
     Dosage: UNK, QD
     Route: 048

REACTIONS (1)
  - Inappropriate schedule of drug administration [Unknown]
